FAERS Safety Report 13825524 (Version 1)
Quarter: 2017Q3

REPORT INFORMATION
  Report Type: Spontaneous
  Country: IL (occurrence: IL)
  Receive Date: 20170802
  Receipt Date: 20170802
  Transmission Date: 20171127
  Serious: Yes (Hospitalization)
  Sender: FDA-Public Use
  Company Number: IL-EMD SERONO-8171643

PATIENT
  Age: 42 Year
  Sex: Female

DRUGS (2)
  1. OVITRELLE [Suspect]
     Active Substance: CHORIOGONADOTROPIN ALFA
     Indication: INFERTILITY FEMALE
     Route: 058
     Dates: start: 20170718, end: 20170718
  2. DECAPEPTYL                         /00486501/ [Concomitant]
     Active Substance: GONADORELIN
     Indication: INFERTILITY FEMALE
     Route: 058

REACTIONS (2)
  - Fall [Unknown]
  - Skull fracture [Unknown]

NARRATIVE: CASE EVENT DATE: 20170718
